FAERS Safety Report 9296875 (Version 2)
Quarter: 2013Q2

REPORT INFORMATION
  Report Type: Spontaneous
  Country: US (occurrence: US)
  Receive Date: 20130517
  Receipt Date: 20130627
  Transmission Date: 20140414
  Serious: No
  Sender: FDA-Public Use
  Company Number: US-PFIZER INC-2013150037

PATIENT
  Age: 47 Year
  Sex: Female
  Weight: 71 kg

DRUGS (3)
  1. DEPO-PROVERA [Suspect]
     Indication: CONTRACEPTION
     Dosage: 150 MG/ML, UNK
     Route: 030
     Dates: start: 20130508
  2. ZOLOFT [Concomitant]
     Indication: DEPRESSION
     Dosage: 1 DF, 1X/DAY (1 TABLET DAILY)
  3. TRAZODONE [Concomitant]
     Indication: DEPRESSION
     Dosage: 1 DF, 1X/DAY (1 TABLET DAILY AT BED TIME)

REACTIONS (1)
  - Back pain [Recovering/Resolving]
